FAERS Safety Report 6852846-8 (Version None)
Quarter: 2010Q3

REPORT INFORMATION
  Report Type: 
  Country: None (occurrence: None)
  Receive Date: 20100717
  Receipt Date: 20071121
  Transmission Date: 20110219
  Serious: No
  Sender: FDA-Public Use
  Company Number: US-PFIZER INC-2007099846

PATIENT
  Sex: Female
  Weight: 46.3 kg

DRUGS (5)
  1. CHANTIX [Suspect]
     Indication: SMOKING CESSATION THERAPY
     Dates: start: 20070827, end: 20070901
  2. LIPITOR [Concomitant]
  3. XANAX [Concomitant]
  4. COZAAR [Concomitant]
     Indication: BLOOD PRESSURE ABNORMAL
  5. LOMOTIL [Concomitant]

REACTIONS (4)
  - DIZZINESS [None]
  - FEELING ABNORMAL [None]
  - MALAISE [None]
  - NAUSEA [None]
